FAERS Safety Report 9893203 (Version 1)
Quarter: 2014Q1

REPORT INFORMATION
  Report Type: Report from Study
  Country: BR (occurrence: BR)
  Receive Date: 20140213
  Receipt Date: 20140213
  Transmission Date: 20141002
  Serious: Yes (Death, Life-Threatening, Hospitalization, Other)
  Sender: FDA-Public Use
  Company Number: BR-ROCHE-1349158

PATIENT
  Sex: Female
  Weight: 68 kg

DRUGS (13)
  1. XOLAIR [Suspect]
     Indication: ASTHMA
     Dosage: 2 DF
     Route: 065
  2. XOLAIR [Suspect]
     Route: 042
  3. SIMVASTATIN [Suspect]
     Indication: PRODUCT USED FOR UNKNOWN INDICATION
     Route: 065
  4. SIMVASTATIN [Suspect]
     Route: 065
     Dates: start: 201304
  5. SIMVASTATIN [Suspect]
     Dosage: 1 DF
     Route: 065
  6. BUDESONIDE [Concomitant]
     Route: 065
  7. FUROSEMIDE [Concomitant]
     Route: 065
  8. OMEPRAZOLE [Concomitant]
  9. CAPTOPRIL [Concomitant]
  10. AMITRIPTYLINE [Concomitant]
  11. SPIRONOLACTONE [Concomitant]
  12. SYMBICORT [Concomitant]
  13. ALINIA [Concomitant]

REACTIONS (17)
  - Paraplegia [Fatal]
  - General physical health deterioration [Recovered/Resolved]
  - Asthmatic crisis [Recovering/Resolving]
  - Dyspnoea [Recovered/Resolved]
  - Weight increased [Recovered/Resolved]
  - Blood cholesterol increased [Unknown]
  - Feeling abnormal [Unknown]
  - Aphagia [Unknown]
  - Abdominal pain upper [Unknown]
  - Incorrect route of drug administration [Unknown]
  - Aphasia [Unknown]
  - Asthenia [Recovered/Resolved]
  - Gait disturbance [Unknown]
  - Weight decreased [Unknown]
  - Abasia [Recovered/Resolved]
  - Swelling [Unknown]
  - Fatigue [Recovered/Resolved]
